FAERS Safety Report 6411904-2 (Version None)
Quarter: 2009Q4

REPORT INFORMATION
  Report Type: 
  Country: None (occurrence: None)
  Receive Date: 20091023
  Receipt Date: 20091014
  Transmission Date: 20100525
  Serious: Yes (Hospitalization, Disabling, Other)
  Sender: FDA-Public Use
  Company Number: FR-PFIZER INC-2009280058

PATIENT
  Age: 65 Year

DRUGS (3)
  1. PREDNISOLONE AND PREDNISOLONE STEAGLATE [Suspect]
     Indication: ANTIINFLAMMATORY THERAPY
     Dosage: UNK
     Route: 048
     Dates: start: 20090601
  2. IRINOTECAN HCL [Suspect]
     Indication: GLIOBLASTOMA
     Dosage: UNK
     Route: 042
     Dates: start: 20090803, end: 20090914
  3. BEVACIZUMAB [Suspect]
     Indication: GLIOBLASTOMA
     Dosage: UNK
     Route: 042
     Dates: start: 20090803, end: 20090914

REACTIONS (2)
  - GENERAL PHYSICAL CONDITION ABNORMAL [None]
  - HYPERGLYCAEMIA [None]
